FAERS Safety Report 12979115 (Version 2)
Quarter: 2016Q4

REPORT INFORMATION
  Report Type: Spontaneous
  Country: DE (occurrence: DE)
  Receive Date: 20161128
  Receipt Date: 20161220
  Transmission Date: 20170207
  Serious: Yes (Hospitalization, Other)
  Sender: FDA-Public Use
  Company Number: DE-GLAXOSMITHKLINE-DE2016GSK171254

PATIENT
  Age: 46 Year
  Sex: Male
  Weight: 96 kg

DRUGS (1)
  1. MALARONE [Suspect]
     Active Substance: ATOVAQUONE\PROGUANIL HYDROCHLORIDE
     Indication: PRODUCT USED FOR UNKNOWN INDICATION
     Dosage: UNK
     Dates: start: 20160824, end: 20160907

REACTIONS (14)
  - Drug ineffective [Unknown]
  - Gastrooesophageal reflux disease [Unknown]
  - Lymphadenopathy [Unknown]
  - Malaria [Recovered/Resolved]
  - Headache [Recovered/Resolved]
  - Decreased appetite [Recovered/Resolved]
  - Intestinal mucosal hypertrophy [Unknown]
  - Gastrointestinal inflammation [Unknown]
  - Splenomegaly [Recovered/Resolved]
  - Abdominal pain [Recovered/Resolved]
  - Fatigue [Recovered/Resolved]
  - Malaise [Recovered/Resolved]
  - Pyrexia [Recovered/Resolved]
  - Bone marrow disorder [Unknown]

NARRATIVE: CASE EVENT DATE: 201609
